FAERS Safety Report 10239369 (Version 1)
Quarter: 2014Q2

REPORT INFORMATION
  Report Type: Spontaneous
  Country: US (occurrence: US)
  Receive Date: 20140616
  Receipt Date: 20140616
  Transmission Date: 20141212
  Serious: No
  Sender: FDA-Public Use
  Company Number: US-ABBVIE-14P-163-1217391-00

PATIENT
  Age: 38 Year
  Sex: Female
  Weight: 52.66 kg

DRUGS (2)
  1. LUPANETA PACK [Suspect]
     Indication: ENDOMETRIOSIS
     Dates: start: 20140319
  2. LUPANETA PACK [Suspect]
     Indication: PRODUCT USED FOR UNKNOWN INDICATION
     Dates: start: 20140319

REACTIONS (1)
  - Hot flush [Unknown]
